FAERS Safety Report 5821997-9 (Version None)
Quarter: 2008Q3

REPORT INFORMATION
  Report Type: 
  Country: None (occurrence: None)
  Receive Date: 20080724
  Receipt Date: 20080616
  Transmission Date: 20090109
  Serious: Yes (Hospitalization)
  Sender: FDA-Public Use
  Company Number: IE-MERCK-0803GBR00052

PATIENT
  Age: 64 Year
  Sex: Female

DRUGS (8)
  1. MODURETIC 5-50 [Suspect]
     Indication: HYPERTENSION
     Route: 048
     Dates: start: 20051115, end: 20070101
  2. MODURETIC 5-50 [Suspect]
     Route: 048
     Dates: start: 20070101, end: 20071210
  3. BISOPROLOL [Concomitant]
     Indication: HYPERTENSION
     Route: 065
     Dates: start: 20070803
  4. MEBEVERINE HYDROCHLORIDE [Concomitant]
     Indication: IRRITABLE BOWEL SYNDROME
     Route: 048
     Dates: start: 20011002
  5. LEVOTHYROXINE SODIUM [Concomitant]
     Indication: HYPERTHYROIDISM
     Route: 048
     Dates: start: 20021105
  6. OMEPRAZOLE [Concomitant]
     Indication: GASTROOESOPHAGEAL REFLUX DISEASE
     Route: 048
     Dates: start: 20070625
  7. ZOLMITRIPTAN [Concomitant]
     Indication: MIGRAINE
     Route: 048
     Dates: start: 20030722
  8. FLURAZEPAM HYDROCHLORIDE [Concomitant]
     Indication: INSOMNIA
     Route: 048
     Dates: start: 20011002

REACTIONS (10)
  - ABDOMINAL DISTENSION [None]
  - ASTHENIA [None]
  - CHEST PAIN [None]
  - DEHYDRATION [None]
  - DIZZINESS [None]
  - DYSPNOEA [None]
  - HYPONATRAEMIA [None]
  - INSOMNIA [None]
  - MUSCLE SPASMS [None]
  - VISION BLURRED [None]
